FAERS Safety Report 10172384 (Version 1)
Quarter: 2014Q2

REPORT INFORMATION
  Report Type: Report from Study
  Country: US (occurrence: US)
  Receive Date: 20140515
  Receipt Date: 20140515
  Transmission Date: 20141212
  Serious: No
  Sender: FDA-Public Use
  Company Number: US-ALEXION-A201401781

PATIENT
  Sex: 0

DRUGS (11)
  1. SOLIRIS [Suspect]
     Indication: PAROXYSMAL NOCTURNAL HAEMOGLOBINURIA
     Dosage: 900 MG, Q2W
     Route: 042
     Dates: start: 20100610
  2. ASPIRIN [Concomitant]
     Indication: PRODUCT USED FOR UNKNOWN INDICATION
     Dosage: 80 MG, QD
     Route: 065
     Dates: start: 20100604, end: 20100621
  3. DIOVAN A [Concomitant]
     Indication: PRODUCT USED FOR UNKNOWN INDICATION
     Dosage: 160 MG, QD
     Route: 065
     Dates: start: 20100604
  4. FOLIC ACID [Concomitant]
     Indication: PRODUCT USED FOR UNKNOWN INDICATION
     Dosage: 1 MG, QD
     Route: 065
     Dates: start: 20100604
  5. SYNTHROID [Concomitant]
     Indication: PRODUCT USED FOR UNKNOWN INDICATION
     Dosage: 0.137 MG, QD
     Route: 065
     Dates: start: 20100604
  6. PREDNISONE [Concomitant]
     Indication: STEROID THERAPY
     Dosage: 5 MG, BID
     Route: 065
     Dates: start: 20100712, end: 20110611
  7. COUMADIN                           /00014802/ [Concomitant]
     Indication: ANTICOAGULANT THERAPY
     Dosage: 2.5 MG, THREE X WEEKLY
     Route: 065
     Dates: start: 20100712
  8. COUMADIN                           /00014802/ [Concomitant]
     Dosage: 5 MG, FOUR X WEEKLY
     Route: 065
     Dates: start: 20100712
  9. DANAZOL [Concomitant]
     Indication: STEROID THERAPY
     Dosage: UNK
     Route: 065
     Dates: start: 20110401, end: 20120316
  10. CYCLOBENZAPRINE [Concomitant]
     Indication: MUSCLE RELAXANT THERAPY
     Dosage: 1 DF, AT NIGHT
     Route: 065
     Dates: start: 20120601
  11. GABAPENTIN [Concomitant]
     Indication: NEURALGIA
     Dosage: 1 DF, BID
     Route: 065
     Dates: start: 20120601

REACTIONS (1)
  - Laboratory test abnormal [Unknown]
